FAERS Safety Report 20922336 (Version 1)
Quarter: 2022Q2

REPORT INFORMATION
  Report Type: Spontaneous
  Country: FR (occurrence: FR)
  Receive Date: 20220607
  Receipt Date: 20220607
  Transmission Date: 20220721
  Serious: Yes (Other)
  Sender: FDA-Public Use
  Company Number: FR-SA-SAC20220519001600

PATIENT
  Age: 74 Year
  Sex: Male

DRUGS (4)
  1. CORDARONE [Suspect]
     Active Substance: AMIODARONE HYDROCHLORIDE
     Indication: Product used for unknown indication
     Dosage: 2 DF, QD
     Route: 065
  2. CORDARONE [Suspect]
     Active Substance: AMIODARONE HYDROCHLORIDE
     Dosage: 1 DF, QD
     Route: 065
  3. MULTAQ [Suspect]
     Active Substance: DRONEDARONE
     Dosage: 1 DF, QD
     Route: 065
  4. MULTAQ [Suspect]
     Active Substance: DRONEDARONE
     Dosage: 1 DF, QOD
     Route: 065

REACTIONS (4)
  - Atrial fibrillation [Recovering/Resolving]
  - Diaphragmalgia [Recovering/Resolving]
  - Heart rate decreased [Recovering/Resolving]
  - Intentional product misuse [Unknown]
